FAERS Safety Report 16053590 (Version 3)
Quarter: 2019Q3

REPORT INFORMATION
  Report Type: Spontaneous
  Country: US (occurrence: US)
  Receive Date: 20190308
  Receipt Date: 20190916
  Transmission Date: 20191004
  Serious: No
  Sender: FDA-Public Use
  Company Number: US-HTU-2019US018350

PATIENT
  Age: 81 Year
  Sex: Male

DRUGS (1)
  1. VALCHLOR [Suspect]
     Active Substance: MECHLORETHAMINE
     Indication: CUTANEOUS T-CELL LYMPHOMA
     Dosage: UNK, UNKNOWN
     Route: 061
     Dates: start: 20181113

REACTIONS (6)
  - Erythema [Recovered/Resolved]
  - Skin abrasion [Recovered/Resolved]
  - Memory impairment [Not Recovered/Not Resolved]
  - Skin warm [Not Recovered/Not Resolved]
  - Skin swelling [Recovered/Resolved]
  - Thyroid disorder [Unknown]

NARRATIVE: CASE EVENT DATE: 201812
